FAERS Safety Report 5002188-0 (Version None)
Quarter: 2006Q2

REPORT INFORMATION
  Report Type: 
  Country: None (occurrence: None)
  Receive Date: 20060510
  Receipt Date: 20060424
  Transmission Date: 20061013
  Serious: Yes (Hospitalization)
  Sender: FDA-Public Use
  Company Number: SP00769

PATIENT
  Age: 65 Year
  Sex: Male
  Weight: 85.2762 kg

DRUGS (6)
  1. VISICOL [Suspect]
     Indication: COLONOSCOPY
     Dosage: 32 TABLETS OVER 2 DAYS (ONCE), ORAL
     Route: 048
     Dates: start: 20051130, end: 20051201
  2. LISINOPRIL [Concomitant]
  3. HYDROCHLOROTHIAZIDE [Concomitant]
  4. HUMALOG [Concomitant]
  5. SYNTHROID [Concomitant]
  6. ZETIA [Concomitant]

REACTIONS (9)
  - DIABETIC NEPHROPATHY [None]
  - FAT EMBOLISM [None]
  - HAEMODIALYSIS [None]
  - NAUSEA [None]
  - NEPHROCALCINOSIS [None]
  - NEPHROSCLEROSIS [None]
  - REFUSAL OF TREATMENT BY PATIENT [None]
  - RENAL FAILURE [None]
  - VOMITING [None]
